FAERS Safety Report 5740013-0 (Version None)
Quarter: 2008Q2

REPORT INFORMATION
  Report Type: 
  Country: None (occurrence: None)
  Receive Date: 20080516
  Receipt Date: 20080516
  Transmission Date: 20081010
  Serious: Yes (Death)
  Sender: FDA-Public Use
  Company Number: None

PATIENT
  Sex: Male
  Weight: 93.8 kg

DRUGS (1)
  1. HEPARIN SODIUM [Suspect]
     Indication: DIALYSIS
     Dosage: 2000U ONCE IV BOLUS
     Route: 040
     Dates: start: 20080508, end: 20080508

REACTIONS (2)
  - CARDIAC ARREST [None]
  - DYSPNOEA [None]
